FAERS Safety Report 10162415 (Version 1)
Quarter: 2014Q2

REPORT INFORMATION
  Report Type: Spontaneous
  Country: US (occurrence: US)
  Receive Date: 20140509
  Receipt Date: 20140509
  Transmission Date: 20141212
  Serious: No
  Sender: FDA-Public Use
  Company Number: US-GLAXOSMITHKLINE-A1065752A

PATIENT
  Age: 49 Year
  Sex: Female

DRUGS (1)
  1. BACTROBAN [Suspect]

REACTIONS (2)
  - Drug hypersensitivity [Unknown]
  - Rash [Unknown]
